FAERS Safety Report 14661862 (Version 2)
Quarter: 2018Q4

REPORT INFORMATION
  Report Type: Report from Study
  Country: US (occurrence: US)
  Receive Date: 20180320
  Receipt Date: 20181228
  Transmission Date: 20190204
  Serious: Yes (Other)
  Sender: FDA-Public Use
  Company Number: US-ASTRAZENECA-2018SE32888

PATIENT
  Age: 934 Month
  Sex: Female
  Weight: 49.9 kg

DRUGS (5)
  1. CLONAZEPAM. [Concomitant]
     Active Substance: CLONAZEPAM
     Indication: RAPID EYE MOVEMENTS SLEEP ABNORMAL
  2. IPRATROPIUM BROMIDE. [Concomitant]
     Active Substance: IPRATROPIUM BROMIDE
  3. ALBUTEROL. [Concomitant]
     Active Substance: ALBUTEROL
  4. SYMBICORT [Suspect]
     Active Substance: BUDESONIDE\FORMOTEROL FUMARATE DIHYDRATE
     Indication: CHRONIC OBSTRUCTIVE PULMONARY DISEASE
     Dosage: 160, 2 PUFFS TWICE A DAY
     Route: 055
  5. CYTOCHROME C [Concomitant]

REACTIONS (15)
  - Fungal infection [Unknown]
  - Feeling abnormal [Unknown]
  - Product use issue [Not Recovered/Not Resolved]
  - General physical health deterioration [Unknown]
  - Dyspnoea [Unknown]
  - Nervousness [Unknown]
  - Hypertension [Unknown]
  - Speech disorder [Unknown]
  - Wheezing [Not Recovered/Not Resolved]
  - Dementia [Unknown]
  - Loss of personal independence in daily activities [Not Recovered/Not Resolved]
  - Inspiratory capacity decreased [Unknown]
  - Intentional product misuse [Not Recovered/Not Resolved]
  - Diarrhoea [Unknown]
  - Product dose omission [Not Recovered/Not Resolved]

NARRATIVE: CASE EVENT DATE: 201811
